FAERS Safety Report 4281441-2 (Version None)
Quarter: 2004Q1

REPORT INFORMATION
  Report Type: 
  Country: None (occurrence: None)
  Receive Date: 20040112
  Receipt Date: 20031030
  Transmission Date: 20041129
  Serious: Yes (Other)
  Sender: FDA-Public Use
  Company Number: 350483

PATIENT
  Age: 39 Year
  Sex: Male
  Weight: 70.3 kg

DRUGS (1)
  1. FUZEON [Suspect]
     Indication: HIV INFECTION
     Dosage: 90 MG 2 PER DAY, SUBCUTANEOUS
     Route: 058
     Dates: start: 20030910

REACTIONS (3)
  - HERPES SIMPLEX [None]
  - RETINITIS [None]
  - VISION BLURRED [None]
